FAERS Safety Report 6807039-7 (Version None)
Quarter: 2010Q2

REPORT INFORMATION
  Report Type: 
  Country: None (occurrence: None)
  Receive Date: 20100629
  Receipt Date: 20080728
  Transmission Date: 20101027
  Serious: No
  Sender: FDA-Public Use
  Company Number: US-PFIZER INC-2008054297

PATIENT
  Sex: Female
  Weight: 59.1 kg

DRUGS (12)
  1. XANAX [Suspect]
     Indication: SLEEP DISORDER
  2. CHANTIX [Suspect]
     Indication: SMOKING CESSATION THERAPY
     Dates: start: 20080622
  3. REGLAN [Concomitant]
  4. NEXIUM [Concomitant]
  5. REMERON [Concomitant]
  6. VIRACEPT [Concomitant]
  7. COMBIVIR [Concomitant]
  8. PREMARIN [Concomitant]
  9. TRAZODONE HYDROCHLORIDE [Concomitant]
  10. PANCREATIN [Concomitant]
  11. FLONASE [Concomitant]
  12. ALL OTHER THERAPEUTIC PRODUCTS [Concomitant]

REACTIONS (2)
  - NAUSEA [None]
  - SLEEP DISORDER [None]
